FAERS Safety Report 5319291-8 (Version None)
Quarter: 2007Q2

REPORT INFORMATION
  Report Type: 
  Country: None (occurrence: None)
  Receive Date: 20070508
  Receipt Date: 20070426
  Transmission Date: 20071010
  Serious: Yes (Hospitalization)
  Sender: FDA-Public Use
  Company Number: US-AMGEN-STX219389

PATIENT
  Sex: Male

DRUGS (17)
  1. ENBREL [Suspect]
     Indication: RHEUMATOID ARTHRITIS
     Route: 058
  2. PREDNISONE TAB [Concomitant]
     Route: 048
  3. MOTRIN [Concomitant]
     Route: 048
  4. ZANAFLEX [Concomitant]
     Route: 048
  5. LASIX [Concomitant]
     Route: 048
  6. LASIX [Concomitant]
     Route: 042
  7. METOPROLOL SUCCINATE [Concomitant]
     Route: 048
  8. FOSAMAX [Concomitant]
     Route: 048
  9. ALBUTEROL [Concomitant]
     Route: 055
  10. PAROXETINE [Concomitant]
     Route: 048
  11. LISINOPRIL [Concomitant]
     Route: 048
  12. OMEPRAZOLE [Concomitant]
     Route: 048
  13. LORTAB [Concomitant]
     Route: 048
  14. ASPIRIN [Concomitant]
     Route: 048
  15. BACTROBAN [Concomitant]
     Route: 061
  16. METHADONE HCL [Concomitant]
     Route: 048
  17. DYAZIDE [Concomitant]
     Route: 048

REACTIONS (14)
  - ACUTE RESPIRATORY DISTRESS SYNDROME [None]
  - CANDIDIASIS [None]
  - CARDIAC FAILURE CONGESTIVE [None]
  - CHEST PAIN [None]
  - DECUBITUS ULCER [None]
  - DEHYDRATION [None]
  - DYSPHAGIA [None]
  - HALLUCINATION [None]
  - HEADACHE [None]
  - HYPERGLYCAEMIA [None]
  - OEDEMA PERIPHERAL [None]
  - PNEUMONIA [None]
  - PULMONARY OEDEMA [None]
  - RESPIRATORY FAILURE [None]
